FAERS Safety Report 15814845 (Version 2)
Quarter: 2019Q3

REPORT INFORMATION
  Report Type: Spontaneous
  Country: DE (occurrence: DE)
  Receive Date: 20190111
  Receipt Date: 20190820
  Transmission Date: 20191004
  Serious: Yes (Hospitalization, Other)
  Sender: FDA-Public Use
  Company Number: DE-ACCORD-101574

PATIENT
  Age: 80 Year
  Sex: Female

DRUGS (18)
  1. COLECALCIFEROL [Concomitant]
     Active Substance: CHOLECALCIFEROL
     Dosage: 1000 IE, 1-0-0-0
  2. CARBIDOPA/LEVODOPA [Concomitant]
     Dosage: 100/25 MG, 1-1-1-1 AT THE TIMES 7:00, 11:00, 15:00, 19:00
  3. BENSERAZIDE/LEVODOPA [Concomitant]
     Dosage: NK MG, 1-0-0-0,100/25 MG, 1-1-1-0
  4. IBUPROFEN. [Suspect]
     Active Substance: IBUPROFEN
     Indication: PRODUCT USED FOR UNKNOWN INDICATION
     Dosage: DAILY DOSE: 1600 MG MILLGRAM(S) EVERY DAYS,ALSO RECEIVED 400 MG
     Route: 048
  5. ROPINIROLE/ROPINIROLE HYDROCHLORIDE [Concomitant]
     Dosage: 1-0-0-0
  6. CARBIDOPA/LEVODOPA [Concomitant]
     Dosage: 100/25 MG, 1-1-1-1 AT THE TIMES 7:00, 11:00, 15:00, 19:00,200/50 MG, 0-0-0-1
  7. ROPINIROLE/ROPINIROLE HYDROCHLORIDE [Concomitant]
     Dosage: 1-0-0-0, ALSO RECEIVED 4 MG,12 MG, 0-0-1-0,8 MG, 1-0-0.5-0
  8. SERTRALINE [Suspect]
     Active Substance: SERTRALINE HYDROCHLORIDE
     Indication: PRODUCT USED FOR UNKNOWN INDICATION
     Dosage: DAILY DOSE: 50 MG MILLGRAM(S) EVERY DAYS
  9. MACROGOL/MACROGOL STEARATE [Concomitant]
     Dosage: NK MG, 1-0-0-0
  10. LEVOTHYROXINE. [Concomitant]
     Active Substance: LEVOTHYROXINE
     Dosage: 1-0-0-0
  11. ROPINIROLE/ROPINIROLE HYDROCHLORIDE [Concomitant]
     Dosage: 1-0-0-0, ALSO RECEIVED 4 MG,12 MG, 0-0-1-0,8 MG, 1-0-0.5-0
  12. ROTIGOTINE [Concomitant]
     Active Substance: ROTIGOTINE
     Dosage: 2 MG / DAY, 1-0-0-0 AFTER ONE WEEK 2-0-0-0
     Route: 062
  13. PANTOPRAZOLE [Concomitant]
     Active Substance: PANTOPRAZOLE
     Dosage: 1-0-0-0
  14. OPICAPONE [Concomitant]
     Active Substance: OPICAPONE
     Dosage: 50 MG, 0-0-0-1 DISCONTINUED ON 15.03.2018
  15. BENSERAZIDE/LEVODOPA [Concomitant]
     Dosage: NK MG, 1-0-0-0
  16. NATRIUMCHLORID [Concomitant]
     Active Substance: SODIUM CHLORIDE
     Dosage: STRENGTH: 1000 MG ,1-1-1-0
  17. IBUPROFEN. [Suspect]
     Active Substance: IBUPROFEN
     Indication: PRODUCT USED FOR UNKNOWN INDICATION
     Dosage: DAILY1600 MG EVERY DAYS,ALSO RECEIVED 400 MG
     Route: 048
  18. RAMIPRIL. [Concomitant]
     Active Substance: RAMIPRIL
     Dosage: 2.5 MG, 1-0-1-0

REACTIONS (5)
  - Product prescribing error [Unknown]
  - Haematochezia [Unknown]
  - Anal haemorrhage [Not Recovered/Not Resolved]
  - Abdominal pain lower [Not Recovered/Not Resolved]
  - Product communication issue [Unknown]

NARRATIVE: CASE EVENT DATE: 201803
